FAERS Safety Report 20739965 (Version 1)
Quarter: 2022Q2

REPORT INFORMATION
  Report Type: Spontaneous
  Country: US (occurrence: None)
  Receive Date: 20220422
  Receipt Date: 20220422
  Transmission Date: 20220721
  Serious: Yes (unspecified)
  Sender: FDA-Public Use
  Company Number: None

PATIENT
  Age: 46 Year
  Sex: Female
  Weight: 54.2 kg

DRUGS (8)
  1. BEBTELOVIMAB [Suspect]
     Active Substance: BEBTELOVIMAB
     Indication: COVID-19
     Dosage: FREQUENCY : ONCE;?
     Route: 042
     Dates: start: 20220419, end: 20220419
  2. AMITRIPTYLINE [Concomitant]
  3. URSODIOL [Concomitant]
     Active Substance: URSODIOL
  4. Flonase [Concomitant]
  5. METHOCARBAMOL [Concomitant]
  6. OMEPRAZOLE [Concomitant]
     Active Substance: OMEPRAZOLE
  7. GABAPENTIN [Concomitant]
  8. LEVOTHYROXINE [Concomitant]

REACTIONS (6)
  - Infusion related reaction [None]
  - Feeling hot [None]
  - Flushing [None]
  - Erythema [None]
  - Lip swelling [None]
  - Headache [None]

NARRATIVE: CASE EVENT DATE: 20220419
